FAERS Safety Report 9735098 (Version 1)
Quarter: 2013Q4

REPORT INFORMATION
  Report Type: Spontaneous
  Country: US (occurrence: US)
  Receive Date: 20131206
  Receipt Date: 20131206
  Transmission Date: 20140711
  Serious: No
  Sender: FDA-Public Use
  Company Number: US-PFIZER INC-2013346817

PATIENT
  Age: 69 Year
  Sex: Female
  Weight: 82.5 kg

DRUGS (8)
  1. XELJANZ [Suspect]
     Indication: RHEUMATOID ARTHRITIS
     Dosage: 5 MG, 2X/DAY
     Route: 048
     Dates: start: 201303, end: 20131030
  2. ADVAIR [Concomitant]
     Indication: ASTHMA
     Dosage: UNK
  3. FLUTICASONE [Concomitant]
     Indication: NASAL DISORDER
     Dosage: UNK
     Route: 045
  4. FLUTICASONE [Concomitant]
     Indication: HYPERSENSITIVITY
  5. ASTHALIN [Concomitant]
     Indication: NASAL DISORDER
     Dosage: UNK
  6. ASTHALIN [Concomitant]
     Indication: HYPERSENSITIVITY
  7. LOSARTAN [Concomitant]
     Indication: HYPERTENSION
     Dosage: 100 MG, 1X/DAY
  8. AMLODIPINE [Concomitant]
     Indication: HYPERTENSION
     Dosage: 10 MG, 1X/DAY

REACTIONS (1)
  - Drug ineffective [Unknown]
